FAERS Safety Report 19902126 (Version 1)
Quarter: 2021Q3

REPORT INFORMATION
  Report Type: Spontaneous
  Country: US (occurrence: US)
  Receive Date: 20210930
  Receipt Date: 20210930
  Transmission Date: 20211014
  Serious: Yes (Death, Other)
  Sender: FDA-Public Use
  Company Number: US-AMGEN-USASP2021146933

PATIENT
  Age: 39 Year
  Sex: Female

DRUGS (2)
  1. FOLFIRINOX [Suspect]
     Active Substance: FLUOROURACIL\IRINOTECAN\LEUCOVORIN\OXALIPLATIN
     Indication: RECTAL CANCER STAGE IV
     Route: 065
  2. BEVACIZUMAB. [Suspect]
     Active Substance: BEVACIZUMAB
     Indication: RECTAL CANCER STAGE IV
     Dosage: UNK
     Route: 065

REACTIONS (3)
  - Death [Fatal]
  - Therapy partial responder [Unknown]
  - Neuroendocrine carcinoma [Unknown]
